FAERS Safety Report 9919580 (Version 1)
Quarter: 2014Q1

REPORT INFORMATION
  Report Type: Spontaneous
  Country: GR (occurrence: GR)
  Receive Date: 20140224
  Receipt Date: 20140224
  Transmission Date: 20141002
  Serious: Yes (Other)
  Sender: FDA-Public Use
  Company Number: GR-ABBVIE-14P-066-1205268-00

PATIENT
  Sex: 0

DRUGS (4)
  1. DEPAKINE [Suspect]
     Indication: DRUG ABUSE
     Route: 065
  2. BROMAZEPAM [Suspect]
     Indication: DRUG ABUSE
     Route: 065
  3. HEROIN [Concomitant]
     Indication: PRODUCT USED FOR UNKNOWN INDICATION
  4. VULBEGAL [Concomitant]
     Indication: PRODUCT USED FOR UNKNOWN INDICATION

REACTIONS (1)
  - Drug abuser [Unknown]
